FAERS Safety Report 7771259-8 (Version None)
Quarter: 2011Q3

REPORT INFORMATION
  Report Type: 
  Country: None (occurrence: None)
  Receive Date: 20110921
  Receipt Date: 20110908
  Transmission Date: 20111222
  Serious: Yes (Other)
  Sender: FDA-Public Use
  Company Number: 1031469

PATIENT
  Age: 44 Year
  Sex: Female
  Weight: 54.55 kg

DRUGS (2)
  1. MORPHINE SULFATE [Suspect]
     Indication: PAIN
     Dosage: 4 MG, ONCE, INTRAVENOUS
     Route: 042
     Dates: start: 20110814, end: 20110814
  2. ONDANSETRON [Concomitant]

REACTIONS (1)
  - RASH ERYTHEMATOUS [None]
